FAERS Safety Report 5994874-0 (Version None)
Quarter: 2008Q4

REPORT INFORMATION
  Report Type: 
  Country: None (occurrence: None)
  Receive Date: 20081212
  Receipt Date: 20080916
  Transmission Date: 20090506
  Serious: No
  Sender: FDA-Public Use
  Company Number: US-ABBOTT-08P-163-0476804-00

PATIENT
  Sex: Female
  Weight: 72.64 kg

DRUGS (9)
  1. HUMIRA [Suspect]
     Indication: RHEUMATOID ARTHRITIS
     Route: 058
  2. HUMIRA [Suspect]
     Dosage: HUMIRA PRE-FILLED SYRINGE EVERY 2 WEEKS
     Route: 058
  3. METHOTREXATE [Concomitant]
     Indication: RHEUMATOID ARTHRITIS
     Dosage: 7 - 2.5 MILLIGRAM PILLS WEEKLY
     Route: 048
     Dates: start: 20040101
  4. NABUMETONE [Concomitant]
     Indication: RHEUMATOID ARTHRITIS
     Dosage: 2 DAILY AS NEEDED
     Route: 048
     Dates: start: 20080601
  5. SULTOPRIDE [Concomitant]
     Indication: HYPERTENSION
     Route: 048
  6. OBETROL [Concomitant]
     Indication: ATTENTION DEFICIT/HYPERACTIVITY DISORDER
     Route: 048
  7. PROTONICS [Concomitant]
     Indication: GASTROOESOPHAGEAL REFLUX DISEASE
     Route: 048
     Dates: start: 20080701
  8. FOLIC ACID [Concomitant]
     Indication: VITAMIN SUPPLEMENTATION
     Route: 048
     Dates: start: 20040101
  9. NABUMETONE [Concomitant]
     Route: 048
     Dates: end: 20080601

REACTIONS (4)
  - ACCIDENTAL EXPOSURE [None]
  - GASTRIC ULCER [None]
  - MOBILITY DECREASED [None]
  - RHEUMATOID ARTHRITIS [None]
